FAERS Safety Report 10734033 (Version 1)
Quarter: 2015Q1

REPORT INFORMATION
  Report Type: Spontaneous
  Country: FI (occurrence: None)
  Receive Date: 20150120
  Receipt Date: 20150120
  Transmission Date: 20150721
  Serious: Yes (Life-Threatening, Hospitalization)
  Sender: FDA-Public Use
  Company Number: 2015FI0005

PATIENT
  Age: 40 Year
  Sex: Male

DRUGS (3)
  1. KINERET [Suspect]
     Active Substance: ANAKINRA
     Indication: FAMILIAL COLD AUTOINFLAMMATORY SYNDROME
     Route: 058
     Dates: start: 20140828, end: 20141204
  2. NASONEX (MOMETASONE FUROATE) (NASAL SPRAY) [Concomitant]
  3. SERETIDE (SERETIDE) (FLUTICASONE FUROATE, SALMETEROL XINAFOATE) [Concomitant]

REACTIONS (5)
  - Pneumonia [None]
  - Injection site reaction [None]
  - Vision blurred [None]
  - Headache [None]
  - Goodpasture^s syndrome [None]

NARRATIVE: CASE EVENT DATE: 20141204
